FAERS Safety Report 14875666 (Version 1)
Quarter: 2018Q2

REPORT INFORMATION
  Report Type: Spontaneous
  Country: NL (occurrence: NL)
  Receive Date: 20180510
  Receipt Date: 20180510
  Transmission Date: 20180711
  Serious: Yes (Other)
  Sender: FDA-Public Use
  Company Number: NL-GLENMARK PHARMACEUTICALS-2018GMK035079

PATIENT
  Age: 5 Year
  Sex: Male

DRUGS (2)
  1. TOPIRAMATE. [Suspect]
     Active Substance: TOPIRAMATE
     Indication: STATUS EPILEPTICUS
     Dosage: UNK, MAINTENANCE THERAPY, LOW DOSE ONLY FOR A FEW WEEKS
     Route: 065
     Dates: start: 201505, end: 2015
  2. PHENYTOIN. [Concomitant]
     Active Substance: PHENYTOIN
     Indication: STATUS EPILEPTICUS
     Dosage: UNK
     Route: 042

REACTIONS (3)
  - Ataxia [Recovered/Resolved]
  - Encephalopathy [Recovered/Resolved]
  - Dysarthria [Recovered/Resolved]

NARRATIVE: CASE EVENT DATE: 2015
